FAERS Safety Report 9302040 (Version 4)
Quarter: 2013Q2

REPORT INFORMATION
  Report Type: Spontaneous
  Country: US (occurrence: US)
  Receive Date: 20130521
  Receipt Date: 20130606
  Transmission Date: 20140414
  Serious: Yes (Hospitalization, Other)
  Sender: FDA-Public Use
  Company Number: US-BAXTER-2013BAX018641

PATIENT
  Age: 48 Year
  Sex: Female
  Weight: 104 kg

DRUGS (1)
  1. DIANEAL LOW CALCIUM [Suspect]
     Indication: PERITONEAL DIALYSIS
     Route: 033
     Dates: start: 201104

REACTIONS (6)
  - Nosocomial infection [Unknown]
  - Viral infection [Unknown]
  - Loss of consciousness [Recovered/Resolved]
  - Epistaxis [Recovered/Resolved]
  - Ear haemorrhage [Recovered/Resolved]
  - Weight decreased [Recovered/Resolved]
